FAERS Safety Report 17237833 (Version 2)
Quarter: 2020Q1

REPORT INFORMATION
  Report Type: Spontaneous
  Country: IT (occurrence: IT)
  Receive Date: 20200106
  Receipt Date: 20200110
  Transmission Date: 20200409
  Serious: Yes (Hospitalization, Other)
  Sender: FDA-Public Use
  Company Number: IT-MYLANLABS-2020M1001284

PATIENT
  Age: 7 Year
  Sex: Female

DRUGS (1)
  1. QUETIAPINA MYLAN 300 MG COMPRESSE A RILASCIO PROLUNGATO [Suspect]
     Active Substance: QUETIAPINE
     Indication: PRODUCT USED FOR UNKNOWN INDICATION
     Dosage: 1 DOSAGE FORM, TOTAL (300 MG)
     Dates: start: 20190709, end: 20190709

REACTIONS (6)
  - Asthenia [Recovered/Resolved with Sequelae]
  - Drug abuse [Unknown]
  - Intentional self-injury [Unknown]
  - Intentional product misuse [Unknown]
  - Disorientation [Recovered/Resolved with Sequelae]
  - Tongue coated [Recovered/Resolved with Sequelae]

NARRATIVE: CASE EVENT DATE: 20190709
